FAERS Safety Report 9675685 (Version 5)
Quarter: 2014Q2

REPORT INFORMATION
  Report Type: Spontaneous
  Country: US (occurrence: US)
  Receive Date: 20131107
  Receipt Date: 20140508
  Transmission Date: 20141212
  Serious: Yes (Other)
  Sender: FDA-Public Use
  Company Number: US-GILEAD-2013-0086997

PATIENT
  Sex: Female
  Weight: 90.7 kg

DRUGS (10)
  1. LETAIRIS [Suspect]
     Indication: PULMONARY HYPERTENSION
     Dosage: 5 MG, QD
     Route: 048
     Dates: start: 20120406
  2. LETAIRIS [Suspect]
     Indication: MIXED CONNECTIVE TISSUE DISEASE
  3. COUMADIN                           /00014802/ [Concomitant]
     Indication: PULMONARY HYPERTENSION
  4. TRAMADOL [Concomitant]
  5. LEVOTHYROXINE [Concomitant]
  6. PHOSLO [Concomitant]
  7. SODIUM BICARBONATE [Concomitant]
  8. PREDNISONE [Concomitant]
     Indication: INTERSTITIAL LUNG DISEASE
  9. PLAQUENIL                          /00072603/ [Concomitant]
     Indication: INTERSTITIAL LUNG DISEASE
  10. OXYGEN [Concomitant]
     Dosage: 2 L/MIN, QHS

REACTIONS (5)
  - Dialysis [Unknown]
  - Blood pressure decreased [Unknown]
  - Hypotension [Unknown]
  - Dizziness [Unknown]
  - Intentional product misuse [Unknown]
